FAERS Safety Report 5648411-0 (Version None)
Quarter: 2008Q1

REPORT INFORMATION
  Report Type: 
  Country: None (occurrence: None)
  Receive Date: 20080131
  Receipt Date: 20071105
  Transmission Date: 20080703
  Serious: No
  Sender: FDA-Public Use
  Company Number: 2005PV006162

PATIENT
  Age: 44 Year
  Sex: Female
  Weight: 81.7 kg

DRUGS (6)
  1. EXENATIDE (EXENATIDE)PEN, DISPOSABLE [Suspect]
     Indication: TYPE 2 DIABETES MELLITUS
     Dosage: 10, 5  UG, 2/D, SUBCUTANEOUS
     Route: 058
     Dates: start: 20051118, end: 20051217
  2. EXENATIDE (EXENATIDE)PEN, DISPOSABLE [Suspect]
     Indication: TYPE 2 DIABETES MELLITUS
     Dosage: 10, 5  UG, 2/D, SUBCUTANEOUS
     Route: 058
     Dates: start: 20051218
  3. EXENATIDE PEN, DISPOSABLE DEVICE (EXENATIDE PEN) [Concomitant]
  4. GLUCOPHAGE [Concomitant]
  5. GLUCOTROL [Concomitant]
  6. SYNTHROID [Concomitant]

REACTIONS (9)
  - BLOOD GLUCOSE DECREASED [None]
  - DECREASED APPETITE [None]
  - DRUG INEFFECTIVE [None]
  - INJECTION SITE ERYTHEMA [None]
  - INJECTION SITE PRURITUS [None]
  - MALAISE [None]
  - NAUSEA [None]
  - RETCHING [None]
  - TREMOR [None]
